FAERS Safety Report 19031814 (Version 1)
Quarter: 2021Q1

REPORT INFORMATION
  Report Type: Spontaneous
  Country: CA (occurrence: CA)
  Receive Date: 20210319
  Receipt Date: 20210319
  Transmission Date: 20210420
  Serious: Yes (Life-Threatening, Hospitalization, Other)
  Sender: FDA-Public Use
  Company Number: CA-PFIZER INC-2021281516

PATIENT
  Age: 71 Year
  Sex: Male
  Weight: 74 kg

DRUGS (25)
  1. ANTACID [CALCIUM CARBONATE] [Concomitant]
  2. LIDOCAINE. [Concomitant]
     Active Substance: LIDOCAINE
  3. LOPERAMIDE [Concomitant]
     Active Substance: LOPERAMIDE
  4. LORAZEPAM. [Concomitant]
     Active Substance: LORAZEPAM
  5. ONDANSETRON [Concomitant]
     Active Substance: ONDANSETRON
  6. POTASSIUM CHLORIDE. [Concomitant]
     Active Substance: POTASSIUM CHLORIDE
  7. DALTEPARIN [DALTEPARIN SODIUM] [Concomitant]
  8. FILGRASTIM [Concomitant]
     Active Substance: FILGRASTIM
  9. ACETAMINOPHEN. [Concomitant]
     Active Substance: ACETAMINOPHEN
  10. DIMENHYDRINATE. [Concomitant]
     Active Substance: DIMENHYDRINATE
  11. DIPHENHYDRAMINE. [Concomitant]
     Active Substance: DIPHENHYDRAMINE
  12. FUROSEMIDE. [Concomitant]
     Active Substance: FUROSEMIDE
  13. PROCHLORPERAZINE. [Concomitant]
     Active Substance: PROCHLORPERAZINE
  14. SENNOSIDES. [Concomitant]
     Active Substance: SENNOSIDES
  15. HYDROMORPHONE [Concomitant]
     Active Substance: HYDROMORPHONE
  16. IDHIFA [Concomitant]
     Active Substance: ENASIDENIB MESYLATE
  17. PREDNISOLONE ACETATE. [Concomitant]
     Active Substance: PREDNISOLONE ACETATE
  18. ZOPICLONE [Concomitant]
     Active Substance: ZOPICLONE
  19. POLYETHYLENE GLYCOL [MACROGOL] [Concomitant]
     Active Substance: POLYETHYLENE GLYCOLS
  20. SPIRONOLACTONE. [Concomitant]
     Active Substance: SPIRONOLACTONE
  21. CYTARABINE. [Suspect]
     Active Substance: CYTARABINE
     Indication: ACUTE MYELOID LEUKAEMIA
     Dosage: 2805 MG
     Route: 042
  22. METOCLOPRAMIDE. [Concomitant]
     Active Substance: METOCLOPRAMIDE
  23. METOPROLOL. [Concomitant]
     Active Substance: METOPROLOL
  24. PANTOPRAZOLE [Concomitant]
     Active Substance: PANTOPRAZOLE
  25. VALACYCLOVIR [Concomitant]
     Active Substance: VALACYCLOVIR HYDROCHLORIDE

REACTIONS (4)
  - Bronchopulmonary aspergillosis [Recovered/Resolved]
  - Klebsiella infection [Recovered/Resolved]
  - Acute kidney injury [Recovered/Resolved]
  - Febrile neutropenia [Recovered/Resolved]
